FAERS Safety Report 16313066 (Version 1)
Quarter: 2019Q2

REPORT INFORMATION
  Report Type: Spontaneous
  Country: GB (occurrence: GB)
  Receive Date: 20190515
  Receipt Date: 20190515
  Transmission Date: 20190711
  Serious: Yes (Life-Threatening, Hospitalization)
  Sender: FDA-Public Use
  Company Number: GB-TEVA-2019-GB-1047799

PATIENT
  Age: 82 Year
  Sex: Male

DRUGS (20)
  1. TIOTROPIUM BROMIDE [Concomitant]
     Active Substance: TIOTROPIUM BROMIDE
     Dosage: 10 MICROGRAM DAILY; 1 ACTUATION
     Route: 055
  2. SERTRALINE [Concomitant]
     Active Substance: SERTRALINE HYDROCHLORIDE
     Dosage: 100 MILLIGRAM DAILY; MORNING
  3. BISOPROLOL [Concomitant]
     Active Substance: BISOPROLOL
     Dosage: 2.5 MILLIGRAM DAILY; MORNING
  4. FOSTAIR [Concomitant]
     Active Substance: BECLOMETHASONE\FORMOTEROL
     Dosage: 2 DOSAGE FORMS DAILY; PUFF. 200MICROGRAMS/DOSE / 6MICROGRAMS/DOSE
     Route: 055
  5. SALBUTAMOL [Concomitant]
     Active Substance: ALBUTEROL
     Dosage: PUFFS. 4 TIMES A DAY, 200 MICROGRAM
     Route: 055
  6. ISOSORBIDE MONONITRATE. [Concomitant]
     Active Substance: ISOSORBIDE MONONITRATE
     Dosage: 40 MILLIGRAM DAILY;
  7. CLARITHROMYCIN. [Suspect]
     Active Substance: CLARITHROMYCIN
     Dosage: 1000 MILLIGRAM DAILY; FOR 5 DAYS. 250MG PER 5ML
     Route: 048
     Dates: start: 20190131
  8. WARFARIN [Suspect]
     Active Substance: WARFARIN
     Route: 065
  9. RAMIPRIL. [Concomitant]
     Active Substance: RAMIPRIL
     Dosage: 1.25 MILLIGRAM DAILY; MORNING
  10. CO-BENELDOPA [Concomitant]
     Active Substance: BENSERAZIDE HYDROCHLORIDE\LEVODOPA
     Dosage: 1 DOSAGE FORMS DAILY; MORNING. 12.5MG/50MG
  11. DOCUSATE [Concomitant]
     Active Substance: DOCUSATE
     Dosage: 200 MILLIGRAM DAILY;
  12. GLYCERYL TRINITRATE [Concomitant]
     Active Substance: NITROGLYCERIN
     Dosage: 1-2 SPRAYS
     Route: 060
  13. PARACETAMOL [Concomitant]
     Active Substance: ACETAMINOPHEN
     Dosage: 1-2 4 TIMES A DAY 500 MILLIGRAM
  14. DOXAZOSIN [Concomitant]
     Active Substance: DOXAZOSIN\DOXAZOSIN MESYLATE
     Dosage: 1 MILLIGRAM DAILY; MORNING
  15. LACTULOSE. [Concomitant]
     Active Substance: LACTULOSE
     Dosage: TWICE A DAY. 3.1-3.7G/5ML
     Route: 048
  16. GLYCEROL [Concomitant]
     Active Substance: GLYCERIN
     Dosage: MORNING, 4 GRAM
     Route: 054
  17. DARIFENACIN. [Concomitant]
     Active Substance: DARIFENACIN
     Dosage: 7.5 MILLIGRAM DAILY; MORNING
  18. SPIRONOLACTONE. [Concomitant]
     Active Substance: SPIRONOLACTONE
     Dosage: 25 MILLIGRAM DAILY; MORNING
  19. FUROSEMIDE. [Concomitant]
     Active Substance: FUROSEMIDE
     Dosage: 80 MILLIGRAM DAILY; MORNING
  20. BISACODYL. [Concomitant]
     Active Substance: BISACODYL
     Dosage: MORNING, 10 MILLIGRAM
     Route: 054

REACTIONS (3)
  - Lip haemorrhage [Unknown]
  - Gingival bleeding [Unknown]
  - International normalised ratio increased [Recovered/Resolved]

NARRATIVE: CASE EVENT DATE: 20190204
